FAERS Safety Report 12655180 (Version 1)
Quarter: 2016Q3

REPORT INFORMATION
  Report Type: Spontaneous
  Country: JP (occurrence: JP)
  Receive Date: 20160816
  Receipt Date: 20160816
  Transmission Date: 20161109
  Serious: Yes (Hospitalization, Other)
  Sender: FDA-Public Use
  Company Number: JP-MEDA-2016080002

PATIENT
  Age: 22 Year
  Sex: Male

DRUGS (5)
  1. MESALAZINE [Suspect]
     Active Substance: MESALAMINE
     Indication: COLITIS ULCERATIVE
     Dates: start: 2000, end: 2008
  2. PREDNISOLONE. [Concomitant]
     Active Substance: PREDNISOLONE
     Indication: COLITIS ULCERATIVE
     Dates: start: 2000
  3. PREDNISOLONE. [Concomitant]
     Active Substance: PREDNISOLONE
     Indication: COLITIS ULCERATIVE
  4. MIZORIBINE [Concomitant]
     Active Substance: MIZORIBINE
  5. CYCLOSPORINE. [Concomitant]
     Active Substance: CYCLOSPORINE

REACTIONS (6)
  - Dysplasia [Recovered/Resolved]
  - Nephrotic syndrome [Recovered/Resolved]
  - Neuropathy peripheral [Unknown]
  - Metastases to lymph nodes [Recovered/Resolved]
  - Rash [Unknown]
  - Rectal cancer [Recovered/Resolved]

NARRATIVE: CASE EVENT DATE: 200506
